FAERS Safety Report 5375033-1 (Version None)
Quarter: 2007Q2

REPORT INFORMATION
  Report Type: 
  Country: None (occurrence: None)
  Receive Date: 20070625
  Receipt Date: 20070416
  Transmission Date: 20071010
  Serious: No
  Sender: FDA-Public Use
  Company Number: 07P-163-0365121-00

PATIENT
  Age: 42 Year
  Sex: Female

DRUGS (1)
  1. HUMIRA [Suspect]
     Dosage: NOT REPORTED
     Dates: end: 20070321

REACTIONS (4)
  - ABASIA [None]
  - PAIN [None]
  - SWELLING [None]
  - TUBERCULOSIS [None]
